FAERS Safety Report 4279812-3 (Version None)
Quarter: 2004Q1

REPORT INFORMATION
  Report Type: 
  Country: None (occurrence: None)
  Receive Date: 20040126
  Receipt Date: 20040112
  Transmission Date: 20041129
  Serious: Yes (Hospitalization)
  Sender: FDA-Public Use
  Company Number: UK057590

PATIENT
  Age: 26 Year
  Sex: Female

DRUGS (6)
  1. NEULASTA [Suspect]
     Indication: CHEMOTHERAPY
     Dosage: 1 IN 2 WEEKS
     Dates: start: 20030829
  2. NEUPOGEN [Concomitant]
  3. DOXORUBICIN HCL [Concomitant]
  4. BLEOMYCIN SULFATE [Concomitant]
  5. VINBLASTINE [Concomitant]
  6. DACARBAZINE [Concomitant]

REACTIONS (3)
  - BLOOD DISORDER [None]
  - CHEST PAIN [None]
  - PANCREATITIS ACUTE [None]
